FAERS Safety Report 10085820 (Version 4)
Quarter: 2018Q2

REPORT INFORMATION
  Report Type: Spontaneous
  Country: US (occurrence: US)
  Receive Date: 20140418
  Receipt Date: 20180614
  Transmission Date: 20180711
  Serious: No
  Sender: FDA-Public Use
  Company Number: US-PFIZER INC-2014104807

PATIENT
  Age: 57 Year
  Sex: Female

DRUGS (13)
  1. SILVER SULFADIAZENE [Suspect]
     Active Substance: SILVER SULFADIAZINE
     Dosage: UNK
  2. PERCOCET [Suspect]
     Active Substance: ACETAMINOPHEN\OXYCODONE HYDROCHLORIDE
     Dosage: UNK
  3. SULFUR. [Suspect]
     Active Substance: SULFUR
     Dosage: UNK
  4. MORPHINE SULFATE. [Suspect]
     Active Substance: MORPHINE SULFATE
     Dosage: UNK
  5. CODEINE SULFATE. [Suspect]
     Active Substance: CODEINE SULFATE
     Dosage: UNK
  6. ALLEGRA-D [Suspect]
     Active Substance: FEXOFENADINE\PSEUDOEPHEDRINE
     Dosage: UNK
  7. MEDROL [Suspect]
     Active Substance: METHYLPREDNISOLONE
     Dosage: UNK
  8. PREDNISONE. [Suspect]
     Active Substance: PREDNISONE
     Dosage: UNK
  9. VALIUM [Suspect]
     Active Substance: DIAZEPAM
     Dosage: UNK
  10. LEVAQUIN [Suspect]
     Active Substance: LEVOFLOXACIN
  11. PRILOSEC [Suspect]
     Active Substance: OMEPRAZOLE MAGNESIUM
     Dosage: UNK
  12. PRIDINOL [Suspect]
     Active Substance: PRIDINOL
     Dosage: UNK
  13. AXID AR [Suspect]
     Active Substance: NIZATIDINE
     Dosage: UNK

REACTIONS (1)
  - Drug hypersensitivity [Unknown]
